FAERS Safety Report 5634644-6 (Version None)
Quarter: 2008Q1

REPORT INFORMATION
  Report Type: 
  Country: None (occurrence: None)
  Receive Date: 20080222
  Receipt Date: 20080219
  Transmission Date: 20080703
  Serious: Yes (Death)
  Sender: FDA-Public Use
  Company Number: JP-GENENTECH-255504

PATIENT
  Sex: Female

DRUGS (9)
  1. GRTPA [Suspect]
     Indication: CEREBRAL INFARCTION
     Dosage: 26 ML, UNK
     Route: 042
     Dates: start: 20080127, end: 20080127
  2. ATARAX [Concomitant]
     Indication: DRUG USE FOR UNKNOWN INDICATION
     Dosage: 1 AMP, UNK
     Route: 042
     Dates: start: 20080127
  3. SERENACE [Concomitant]
     Indication: DRUG USE FOR UNKNOWN INDICATION
     Dosage: 1 AMP, UNK
     Route: 042
     Dates: start: 20080127
  4. PENTAZOCINE LACTATE [Concomitant]
     Indication: DRUG USE FOR UNKNOWN INDICATION
     Dosage: 1 AMP, UNK
     Route: 042
     Dates: start: 20080127
  5. SODIUM CHLORIDE INJ [Concomitant]
     Indication: DRUG USE FOR UNKNOWN INDICATION
     Dosage: UNK, UNK
     Route: 041
     Dates: start: 20080127
  6. EPINEPHRINE [Concomitant]
     Indication: DRUG USE FOR UNKNOWN INDICATION
     Dosage: 6 AMP, UNK
     Route: 042
     Dates: start: 20080127
  7. EPINEPHRINE [Concomitant]
     Dosage: 8 AMP, UNK
     Route: 042
     Dates: start: 20080127
  8. EPINEPHRINE [Concomitant]
     Dosage: 4 AMP, UNK
     Route: 042
     Dates: start: 20080128
  9. MEYLON (JAPAN) [Concomitant]
     Indication: DRUG USE FOR UNKNOWN INDICATION
     Dosage: 250 ML, UNK
     Route: 041
     Dates: start: 20080128

REACTIONS (1)
  - AORTIC DISSECTION [None]
